FAERS Safety Report 17120520 (Version 2)
Quarter: 2019Q4

REPORT INFORMATION
  Report Type: Spontaneous
  Country: US (occurrence: US)
  Receive Date: 20191206
  Receipt Date: 20191209
  Transmission Date: 20200122
  Serious: No
  Sender: FDA-Public Use
  Company Number: US-009507513-1911USA003636

PATIENT
  Age: 39 Year
  Sex: Female

DRUGS (1)
  1. NEXPLANON [Suspect]
     Active Substance: ETONOGESTREL
     Dosage: 1 IMPLANT ROD EVERY 3 YEARS
     Route: 059
     Dates: start: 20160621

REACTIONS (3)
  - Incorrect product administration duration [Unknown]
  - Complication associated with device [Unknown]
  - Device breakage [Unknown]

NARRATIVE: CASE EVENT DATE: 2019
